FAERS Safety Report 20659698 (Version 1)
Quarter: 2022Q1

REPORT INFORMATION
  Report Type: Spontaneous
  Country: US (occurrence: US)
  Receive Date: 20220331
  Receipt Date: 20220331
  Transmission Date: 20220423
  Serious: No
  Sender: FDA-Public Use
  Company Number: US-PFIZER INC-2021371721

PATIENT
  Age: 59 Year
  Sex: Male

DRUGS (2)
  1. INLYTA [Suspect]
     Active Substance: AXITINIB
     Dosage: 5 MG
  2. INLYTA [Suspect]
     Active Substance: AXITINIB
     Dosage: 3 MG, 2X/DAY
     Route: 048

REACTIONS (7)
  - Skin lesion [Not Recovered/Not Resolved]
  - Scratch [Unknown]
  - Gait disturbance [Unknown]
  - Dyspnoea [Unknown]
  - Pruritus [Unknown]
  - Dry skin [Unknown]
  - Pain in extremity [Unknown]

NARRATIVE: CASE EVENT DATE: 20210601
